FAERS Safety Report 7479400-1 (Version None)
Quarter: 2011Q2

REPORT INFORMATION
  Report Type: 
  Country: None (occurrence: None)
  Receive Date: 20110513
  Receipt Date: 20110509
  Transmission Date: 20111010
  Serious: Yes (Life-Threatening, Other)
  Sender: FDA-Public Use
  Company Number: CH-PFIZER INC-CH-WYE-G05252710

PATIENT
  Age: 45 Year
  Sex: Female
  Weight: 75 kg

DRUGS (26)
  1. BISOPROLOL FUMARATE [Interacting]
     Indication: VENTRICULAR ARRHYTHMIA
     Dosage: 2.5 MG, DAILY
     Route: 048
     Dates: start: 20091203, end: 20091212
  2. PANTOPRAZOLE [Concomitant]
     Dosage: UNK
     Route: 048
     Dates: start: 20091118, end: 20091212
  3. ALDACTONE [Concomitant]
     Dosage: UNK
     Route: 048
     Dates: start: 20091103
  4. DILTIAZEM HCL [Interacting]
     Indication: ATRIAL FIBRILLATION
     Dosage: UNK
     Route: 048
  5. RIMACTANE [Suspect]
     Indication: STAPHYLOCOCCAL SEPSIS
     Dosage: 300 MG, 3X/DAY
     Route: 040
     Dates: start: 20091105, end: 20091212
  6. RULOFER [Concomitant]
     Dosage: UNK
     Route: 048
     Dates: start: 20091110, end: 20091212
  7. EFFEXOR [Interacting]
  8. METHADONE HCL [Interacting]
     Indication: DRUG DEPENDENCE
  9. FLOXAPEN [Concomitant]
     Dosage: UNK
     Route: 040
     Dates: start: 20091105
  10. ZOLPIDEM TARTRATE [Concomitant]
     Dosage: UNK
     Route: 048
     Dates: start: 20091115
  11. SERETIDE [Concomitant]
     Dosage: UNK
     Route: 055
  12. SUPRADYN [Concomitant]
     Dosage: UNK
     Route: 048
     Dates: start: 20091110, end: 20091212
  13. CORDARONE [Interacting]
     Indication: ATRIAL FLUTTER
  14. DILTIAZEM HCL [Interacting]
     Indication: ATRIAL FLUTTER
     Dosage: 120 MG, DAILY
     Route: 048
     Dates: start: 20091208, end: 20091211
  15. METHADONE HCL [Interacting]
     Indication: MENTAL DISORDER
  16. METOCLOPRAMIDE HYDROCHLORIDE [Interacting]
     Dosage: 10 MG, DAILY
     Route: 048
     Dates: start: 20091106, end: 20091212
  17. COMILORID MITE [Concomitant]
     Dosage: UNK
     Route: 048
     Dates: start: 20091107, end: 20091123
  18. ENOXAPARIN SODIUM [Concomitant]
     Dosage: UNK
     Route: 058
     Dates: start: 20091001
  19. LISINOPRIL [Concomitant]
     Dosage: UNK
     Route: 048
     Dates: start: 20091211
  20. METHADONE HCL [Interacting]
     Indication: ABNORMAL BEHAVIOUR
     Dosage: 20 MG, DAILY
     Route: 048
     Dates: end: 20091212
  21. NICORETTE [Concomitant]
     Dosage: UNK
     Route: 062
     Dates: start: 20091101
  22. POTASSIUM CHLORIDE [Concomitant]
     Dosage: UNK
     Route: 048
     Dates: start: 20091101
  23. EFFEXOR [Interacting]
     Indication: DEPRESSION
     Dosage: 150 MG DAILY
     Route: 048
     Dates: end: 20091212
  24. CORDARONE [Interacting]
     Indication: ATRIAL FIBRILLATION
     Dosage: 200 MG, 1X/DAY
     Route: 048
     Dates: start: 20091105, end: 20091212
  25. TRANXILIUM [Concomitant]
     Dosage: UNK
     Route: 048
     Dates: start: 20091115
  26. TORSEMIDE [Concomitant]
     Dosage: UNK
     Route: 048
     Dates: start: 20091210

REACTIONS (18)
  - EJECTION FRACTION DECREASED [None]
  - STAPHYLOCOCCAL SEPSIS [None]
  - DEVICE RELATED INFECTION [None]
  - CONDITION AGGRAVATED [None]
  - BRADYCARDIA [None]
  - DRUG INTERACTION [None]
  - SUPRAVENTRICULAR TACHYCARDIA [None]
  - ATRIAL FLUTTER [None]
  - HYPOKALAEMIA [None]
  - CARDIAC FAILURE [None]
  - MITRAL VALVE DISEASE [None]
  - BLOOD CREATININE INCREASED [None]
  - CARDIAC ARREST [None]
  - VENTRICULAR FIBRILLATION [None]
  - ATRIOVENTRICULAR BLOCK COMPLETE [None]
  - TRICUSPID VALVE INCOMPETENCE [None]
  - TRANSAMINASES ABNORMAL [None]
  - ELECTROCARDIOGRAM QT PROLONGED [None]
